FAERS Safety Report 5700720-2 (Version None)
Quarter: 2008Q2

REPORT INFORMATION
  Report Type: 
  Country: None (occurrence: None)
  Receive Date: 20080409
  Receipt Date: 20080409
  Transmission Date: 20081010
  Serious: Yes (Disabling)
  Sender: FDA-Public Use
  Company Number: None

PATIENT
  Age: 55 Year
  Sex: Female
  Weight: 77.1115 kg

DRUGS (4)
  1. FEMARA [Suspect]
     Indication: BREAST CANCER
     Dosage: 1 PILL PER DAY PO
     Route: 048
     Dates: start: 20080115, end: 20080301
  2. FEMARA [Suspect]
     Indication: PROPHYLAXIS
     Dosage: 1 PILL PER DAY PO
     Route: 048
     Dates: start: 20080115, end: 20080301
  3. ARIMIDEX [Suspect]
     Indication: BREAST CANCER
     Dosage: 1 PILL PER DAY PO
     Route: 048
     Dates: start: 20080308, end: 20080408
  4. ARIMIDEX [Suspect]
     Indication: PROPHYLAXIS
     Dosage: 1 PILL PER DAY PO
     Route: 048
     Dates: start: 20080308, end: 20080408

REACTIONS (2)
  - CARPAL TUNNEL SYNDROME [None]
  - TRIGGER FINGER [None]
